FAERS Safety Report 19426155 (Version 1)
Quarter: 2021Q2

REPORT INFORMATION
  Report Type: Other
  Country: IT (occurrence: IT)
  Receive Date: 20210616
  Receipt Date: 20210616
  Transmission Date: 20210717
  Serious: Yes (Hospitalization, Other)
  Sender: FDA-Public Use
  Company Number: IT-DEXPHARM-20210780

PATIENT
  Age: 59 Year
  Sex: Female

DRUGS (8)
  1. PLAQUENIL [Suspect]
     Active Substance: HYDROXYCHLOROQUINE SULFATE
  2. PREZISTA [Suspect]
     Active Substance: DARUNAVIR ETHANOLATE
  3. RITONAVIR. [Suspect]
     Active Substance: RITONAVIR
  4. ZARZIO [Suspect]
     Active Substance: FILGRASTIM
     Indication: NEUTROPENIA
  5. ROCEPHIN [Suspect]
     Active Substance: CEFTRIAXONE SODIUM
  6. SARILUMAB [Suspect]
     Active Substance: SARILUMAB
  7. OMEPRAZOLE. [Suspect]
     Active Substance: OMEPRAZOLE
  8. ENOXAPARIN [Suspect]
     Active Substance: ENOXAPARIN

REACTIONS (1)
  - Toxic skin eruption [Recovered/Resolved]
